FAERS Safety Report 7221975-1 (Version None)
Quarter: 2011Q1

REPORT INFORMATION
  Report Type: 
  Country: None (occurrence: None)
  Receive Date: 20110112
  Receipt Date: 20110110
  Transmission Date: 20110831
  Serious: Yes (Life-Threatening)
  Sender: FDA-Public Use
  Company Number: B0693248A

PATIENT
  Sex: Male

DRUGS (1)
  1. AVAMYS [Suspect]
     Route: 045
     Dates: start: 20101210

REACTIONS (2)
  - URTICARIA [None]
  - DYSPNOEA [None]
